FAERS Safety Report 21232794 (Version 5)
Quarter: 2023Q1

REPORT INFORMATION
  Report Type: Spontaneous
  Country: US (occurrence: US)
  Receive Date: 20220819
  Receipt Date: 20230119
  Transmission Date: 20230417
  Serious: Yes (Other)
  Sender: FDA-Public Use
  Company Number: US-PFIZER INC-PV202200044525

PATIENT
  Age: 74 Year
  Sex: Female

DRUGS (2)
  1. XELJANZ XR [Suspect]
     Active Substance: TOFACITINIB CITRATE
     Indication: Rheumatoid arthritis
     Dosage: 11 MG, DAILY
     Route: 048
     Dates: start: 2017, end: 20221022
  2. XELJANZ XR [Suspect]
     Active Substance: TOFACITINIB CITRATE
     Dosage: 11 MG, 1X/DAY
     Route: 048
     Dates: start: 20221206

REACTIONS (13)
  - Cardiac failure [Unknown]
  - Pollakiuria [Unknown]
  - Dyspnoea [Unknown]
  - Peripheral swelling [Unknown]
  - Intentional dose omission [Unknown]
  - Product dose omission issue [Unknown]
  - Headache [Unknown]
  - Neck pain [Recovering/Resolving]
  - Hypersensitivity [Unknown]
  - Rhinorrhoea [Unknown]
  - Pain in extremity [Recovering/Resolving]
  - Adverse food reaction [Unknown]
  - Arthralgia [Recovering/Resolving]

NARRATIVE: CASE EVENT DATE: 20220801
